FAERS Safety Report 8668457 (Version 5)
Quarter: 2014Q1

REPORT INFORMATION
  Report Type: Report from Study
  Country: US (occurrence: US)
  Receive Date: 20120717
  Receipt Date: 20140321
  Transmission Date: 20141002
  Serious: Yes (Hospitalization, Other)
  Sender: FDA-Public Use
  Company Number: US-ALEXION PHARMACEUTICALS INC.-A201201328

PATIENT
  Age: 65 Year
  Sex: Female
  Weight: 72.1 kg

DRUGS (12)
  1. SOLIRIS [Suspect]
     Indication: PAROXYSMAL NOCTURNAL HAEMOGLOBINURIA
     Dosage: 600 MG, QW X 4
     Route: 042
     Dates: start: 20120423
  2. SOLIRIS [Suspect]
     Dosage: 900 MG, Q2W
     Route: 042
     Dates: start: 20120531, end: 20120614
  3. PRILOSEC [Concomitant]
     Dosage: 20 MG, QD
     Route: 048
  4. RANEXA [Concomitant]
     Dosage: 500 MG, BID
     Route: 048
  5. LOPRESSOR [Concomitant]
     Dosage: 100 MG, BID
     Route: 048
  6. AMLODIPINE BESYLATE [Concomitant]
     Dosage: 5 MG, QID
     Route: 048
  7. ISOSORBIDE MONONITRATE CR [Concomitant]
     Dosage: 60 MG, QD
     Route: 048
  8. SYNTHROID [Concomitant]
     Indication: HYPOTHYROIDISM
     Dosage: 100 ?G, QD
     Route: 048
  9. CRESTOR [Concomitant]
     Indication: HYPERLIPIDAEMIA
     Dosage: 40 MG, QD
     Route: 048
  10. CYMBALTA [Concomitant]
     Dosage: 30 MG, 3 AT BEDTIME
     Route: 048
  11. ASPIRIN [Concomitant]
     Dosage: 81 MG, QD
     Route: 048
  12. NITROGLYCERIN [Concomitant]
     Dosage: 0.4 MG, PRN
     Route: 060

REACTIONS (8)
  - Thrombocytopenia [Not Recovered/Not Resolved]
  - Chest pain [Unknown]
  - Back pain [Unknown]
  - White blood cell count decreased [Not Recovered/Not Resolved]
  - Cellulitis [Recovering/Resolving]
  - Catheterisation cardiac [Unknown]
  - Blood pressure decreased [Recovered/Resolved]
  - Haemoglobin decreased [Unknown]
